FAERS Safety Report 5624576-1 (Version None)
Quarter: 2008Q1

REPORT INFORMATION
  Report Type: 
  Country: None (occurrence: None)
  Receive Date: 20080213
  Receipt Date: 20080130
  Transmission Date: 20080703
  Serious: Yes (Hospitalization)
  Sender: FDA-Public Use
  Company Number: CA-ELI_LILLY_AND_COMPANY-CA200710003326

PATIENT
  Age: 58 Year
  Sex: Female

DRUGS (5)
  1. FORTEO [Suspect]
     Indication: OSTEOPOROSIS
     Dosage: 20 UG, DAILY (1/D)
     Route: 058
     Dates: start: 20070604
  2. RABEPRAZOLE SODIUM [Concomitant]
  3. SYMBICORT [Concomitant]
     Route: 055
  4. CALCIUM WITH VITAMIN D [Concomitant]
  5. IRON [Concomitant]
     Route: 048

REACTIONS (3)
  - BLADDER PROLAPSE [None]
  - BLOOD PRESSURE INCREASED [None]
  - DIARRHOEA [None]
